FAERS Safety Report 8912690 (Version 1)
Quarter: 2012Q4

REPORT INFORMATION
  Report Type: 
  Country: BR (occurrence: BR)
  Receive Date: 20121116
  Receipt Date: 20121116
  Transmission Date: 20130627
  Serious: Yes (Hospitalization)
  Sender: FDA-Public Use
  Company Number: BR-AMGEN-BRASP2012072440

PATIENT
  Age: 59 Year
  Sex: Female

DRUGS (6)
  1. ENBREL [Suspect]
     Indication: RHEUMATOID ARTHRITIS
     Dosage: 50 mg, once weekly
     Route: 058
     Dates: start: 201106
  2. ARAVA [Concomitant]
     Dosage: 20 mg  (one tablet), 1x/day
     Route: 048
  3. LOSARTAN POTASSIUM [Concomitant]
     Dosage: 50 mg (one tablet), 1x/day
     Route: 048
  4. REUQUINOL [Concomitant]
     Dosage: half tablet of strenght 400 mg (200 mg), 1x/day
     Route: 048
  5. FLUOXETINE [Concomitant]
     Dosage: 20 mg (one tablet), 1x/day
     Route: 048
  6. OMEPRAZOLE [Concomitant]
     Dosage: 20 mg (one tablet), 1x/day
     Route: 048

REACTIONS (2)
  - Pain [Unknown]
  - Drug ineffective [Unknown]
